FAERS Safety Report 25273182 (Version 1)
Quarter: 2025Q2

REPORT INFORMATION
  Report Type: Spontaneous
  Country: US (occurrence: US)
  Receive Date: 20250506
  Receipt Date: 20250506
  Transmission Date: 20250716
  Serious: Yes (Other)
  Sender: SANOFI AVENTIS
  Company Number: US-SA-2025SA128038

PATIENT
  Age: 57 Year
  Sex: Female

DRUGS (1)
  1. DUPIXENT [Suspect]
     Active Substance: DUPILUMAB
     Indication: Psoriatic arthropathy
     Dosage: 300 MG, QOW
     Route: 058
     Dates: start: 201708

REACTIONS (3)
  - Psoriatic arthropathy [Unknown]
  - Inappropriate schedule of product administration [Unknown]
  - Drug effective for unapproved indication [Unknown]

NARRATIVE: CASE EVENT DATE: 20170801
